FAERS Safety Report 10962447 (Version 2)
Quarter: 2015Q2

REPORT INFORMATION
  Report Type: Report from Study
  Country: US (occurrence: US)
  Receive Date: 20150327
  Receipt Date: 20150506
  Transmission Date: 20150821
  Serious: Yes (Other)
  Sender: FDA-Public Use
  Company Number: US-GLAXOSMITHKLINE-US2015039224

PATIENT
  Age: 58 Year
  Sex: Male
  Weight: 104.3 kg

DRUGS (13)
  1. ASPIRIN. [Concomitant]
     Active Substance: ASPIRIN
     Indication: DIABETES MELLITUS
  2. TRAMETINIB [Suspect]
     Active Substance: TRAMETINIB
     Dosage: 1 MG, QD
     Route: 048
     Dates: start: 20150330
  3. LABETALOL [Concomitant]
     Active Substance: LABETALOL\LABETALOL HYDROCHLORIDE
     Indication: HYPERTENSION
     Route: 048
     Dates: start: 20150310, end: 20150316
  4. METFORMIN [Concomitant]
     Active Substance: METFORMIN HYDROCHLORIDE
     Indication: DIABETES MELLITUS
     Route: 048
  5. ASPIRIN. [Concomitant]
     Active Substance: ASPIRIN
     Indication: HYPERTENSION
     Route: 048
  6. TRAMETINIB [Suspect]
     Active Substance: TRAMETINIB
     Indication: NEOPLASM
     Dosage: 1.5 MG, QD
     Route: 048
     Dates: start: 20150302
  7. BYSTOLIC (NEBIVOLOL) [Concomitant]
     Indication: HYPERTENSION
     Route: 048
     Dates: start: 20150224, end: 20150316
  8. FERROUS SULFATE [Concomitant]
     Active Substance: FERROUS SULFATE\FERROUS SULFATE, DRIED
     Indication: MICROCYTIC ANAEMIA
     Route: 048
  9. PALBOCICLIB [Suspect]
     Active Substance: PALBOCICLIB
     Dosage: 100 MG, UNK
     Route: 048
     Dates: start: 20150330
  10. GLIPIZIDE. [Concomitant]
     Active Substance: GLIPIZIDE
     Indication: DIABETES MELLITUS
     Route: 048
  11. LISINOPRIL. [Concomitant]
     Active Substance: LISINOPRIL
     Indication: HYPERTENSION
     Route: 048
     Dates: start: 20150223, end: 20150313
  12. PALBOCICLIB [Suspect]
     Active Substance: PALBOCICLIB
     Indication: NEOPLASM
     Dosage: 125 MG, CYC
     Route: 048
     Dates: start: 20150302
  13. BENICAR (OLMESARTAN) [Concomitant]
     Indication: HYPERTENSION
     Route: 048
     Dates: start: 20150313, end: 20150328

REACTIONS (1)
  - Vitreous haemorrhage [Recovering/Resolving]

NARRATIVE: CASE EVENT DATE: 20150316
